FAERS Safety Report 9135873 (Version 1)
Quarter: 2013Q1

REPORT INFORMATION
  Report Type: Spontaneous
  Country: US (occurrence: US)
  Receive Date: 20130219
  Receipt Date: 20130219
  Transmission Date: 20140127
  Serious: No
  Sender: FDA-Public Use
  Company Number: US-BRISTOL-MYERS SQUIBB COMPANY-17120858

PATIENT
  Age: 53 Year
  Sex: Male

DRUGS (2)
  1. ORENCIA FOR INJ 250 MG/VIAL [Suspect]
     Route: 042
  2. SULFASALAZINE [Concomitant]
     Indication: OSTEOARTHRITIS
     Dosage: 2 TABS: MORNING AND NIGHT?FREQ:EVERY 28-30 DAYS OR 30 DAYS

REACTIONS (1)
  - Drug ineffective [Unknown]
